FAERS Safety Report 5789379-6 (Version None)
Quarter: 2008Q2

REPORT INFORMATION
  Report Type: 
  Country: None (occurrence: None)
  Receive Date: 20080626
  Receipt Date: 20080130
  Transmission Date: 20081010
  Serious: No
  Sender: FDA-Public Use
  Company Number: US-ASTRAZENECA-2008UW02227

PATIENT
  Age: 80 Year
  Sex: Female
  Weight: 43.1 kg

DRUGS (6)
  1. PULMICORT RESPULES [Suspect]
     Indication: ASTHMA
     Route: 055
     Dates: start: 20071101
  2. PULMICORT RESPULES [Suspect]
     Indication: EMPHYSEMA
     Route: 055
     Dates: start: 20071101
  3. ARICEPT [Concomitant]
  4. PLETAL [Concomitant]
  5. FOSAMAX [Concomitant]
  6. OXYGEN [Concomitant]

REACTIONS (4)
  - COUGH [None]
  - DIARRHOEA [None]
  - DYSPNOEA [None]
  - WHEEZING [None]
